FAERS Safety Report 10412509 (Version 2)
Quarter: 2014Q3

REPORT INFORMATION
  Report Type: Report from Study
  Country: KR (occurrence: KR)
  Receive Date: 20140827
  Receipt Date: 20140902
  Transmission Date: 20150326
  Serious: Yes (Death)
  Sender: FDA-Public Use
  Company Number: KR-SA-2014SA111710

PATIENT
  Age: 75 Year
  Sex: Male
  Weight: 56 kg

DRUGS (2)
  1. LANTUS [Suspect]
     Active Substance: INSULIN GLARGINE
     Indication: DIABETES MELLITUS
     Dosage: DOSE:18 UNIT(S)
     Route: 058
     Dates: start: 20140516, end: 20140716
  2. PANCREATIN [Concomitant]
     Active Substance: PANCRELIPASE
     Indication: GASTROINTESTINAL DISORDER
     Dosage: FORM: ENTERIC COATED TABLETS?STRENGTH: 4000 (UNITS NOT PROVIDED)
     Route: 048
     Dates: start: 20140501, end: 20140716

REACTIONS (2)
  - Blood glucose increased [Unknown]
  - Death [Fatal]

NARRATIVE: CASE EVENT DATE: 20140714
